FAERS Safety Report 4919899-5 (Version None)
Quarter: 2006Q1

REPORT INFORMATION
  Report Type: 
  Country: None (occurrence: None)
  Receive Date: 20060223
  Receipt Date: 20060213
  Transmission Date: 20060701
  Serious: Yes (Death)
  Sender: FDA-Public Use
  Company Number: JP-JNJFOC-20060202778

PATIENT
  Age: 78 Year
  Sex: Female

DRUGS (2)
  1. CRAVIT [Suspect]
     Indication: LUNG INFECTION
     Route: 042
     Dates: start: 20060207, end: 20060207
  2. CHEMOTHERAPY [Concomitant]

REACTIONS (2)
  - BRADYPNOEA [None]
  - DEATH [None]
